FAERS Safety Report 4752657-3 (Version None)
Quarter: 2005Q3

REPORT INFORMATION
  Report Type: 
  Country: None (occurrence: None)
  Receive Date: 20050823
  Receipt Date: 20050809
  Transmission Date: 20060218
  Serious: Yes (Hospitalization)
  Sender: FDA-Public Use
  Company Number: DSA_26861_2005

PATIENT
  Age: 33 Year
  Sex: Female

DRUGS (5)
  1. LORAZEPAM [Suspect]
     Dosage: 20 MG ONCE PO
     Route: 048
     Dates: start: 20050804, end: 20050804
  2. DIPIPERON /GFR/ [Suspect]
     Dosage: DF ONCE PO
     Route: 048
     Dates: start: 20050804, end: 20050804
  3. LORMETAZEPAM [Suspect]
     Dosage: DF ONCE PO
     Route: 048
     Dates: start: 20050804, end: 20050804
  4. TEMAZEPAM [Suspect]
     Dosage: DF ONCE PO
     Route: 048
     Dates: start: 20050804, end: 20050804
  5. ZOLOFT [Suspect]
     Dosage: 30 TAB ONCE PO
     Route: 048
     Dates: start: 20050804, end: 20050804

REACTIONS (4)
  - INTENTIONAL MISUSE [None]
  - MULTIPLE DRUG OVERDOSE [None]
  - SOMNOLENCE [None]
  - VOMITING [None]
